FAERS Safety Report 23246199 (Version 2)
Quarter: 2024Q4

REPORT INFORMATION
  Report Type: Spontaneous
  Country: US (occurrence: US)
  Receive Date: 20231130
  Receipt Date: 20241122
  Transmission Date: 20250114
  Serious: No
  Sender: ALVOGEN
  Company Number: US-ALVOGEN-2023091640

PATIENT
  Sex: Female
  Weight: 58.059 kg

DRUGS (29)
  1. TERIPARATIDE [Suspect]
     Active Substance: TERIPARATIDE
     Indication: Osteoporosis
     Dosage: ABOUT A YEAR AND A HALF AGO?STRENGTH: 250 UG/ML?EXPIRATION DATE: DEC-2023.?#COMP_0529_2023
     Dates: start: 202109
  2. TERIPARATIDE [Suspect]
     Active Substance: TERIPARATIDE
     Indication: Osteoporosis
     Dosage: SECOND PEN EXPIRATION DATE: MAR-2024 ?STRENGTH: 250 UG/ML?COMP_0530_2023
  3. TERIPARATIDE [Suspect]
     Active Substance: TERIPARATIDE
     Indication: Osteoporosis
     Dosage: THIRD PEN EXPIRATION DATE: MAR-2024?STRENGTH: 250 UG/ML?COMP_0531_2023
  4. TERIPARATIDE [Suspect]
     Active Substance: TERIPARATIDE
     Indication: Osteoporosis
     Dosage: FOURTH PEN EXPIRATION DATE: JUN-2024?STRENGTH: 250 UG/ML?COMP_0532_2023
  5. TERIPARATIDE [Suspect]
     Active Substance: TERIPARATIDE
     Indication: Osteoporosis
     Dosage: FIFTH PEN EXPIRATION DATE: MAR-2024?STRENGTH: 250 UG/ML?COMP_0533_2023
  6. TERIPARATIDE [Suspect]
     Active Substance: TERIPARATIDE
     Indication: Osteoporosis
     Dosage: CURRENT PEN EXPIRATION DATE: JUL-2024?STRENGTH: 250 UG/ML?COMP_0500_2023
  7. TERIPARATIDE [Suspect]
     Active Substance: TERIPARATIDE
     Indication: Osteoporosis
     Dosage: STRENGTH: 250 UG/ML?COMP_1121_2024
     Dates: end: 202407
  8. LEXAPRO [Suspect]
     Active Substance: ESCITALOPRAM OXALATE
     Indication: Anxiety
     Dosage: 5 MG A DAY
     Dates: start: 202204, end: 202305
  9. RAMIPRIL [Suspect]
     Active Substance: RAMIPRIL
     Indication: Hypertension
  10. RAMIPRIL [Suspect]
     Active Substance: RAMIPRIL
     Indication: Hypertension
     Dates: start: 202204, end: 202305
  11. AMLODIPINE [Concomitant]
     Active Substance: AMLODIPINE BESYLATE
     Indication: Hypertension
  12. AMLODIPINE [Concomitant]
     Active Substance: AMLODIPINE BESYLATE
     Indication: Hypertension
     Dates: start: 202204, end: 202305
  13. AMLODIPINE [Concomitant]
     Active Substance: AMLODIPINE BESYLATE
     Indication: Hypertension
     Dates: start: 2023
  14. CRESTOR [Concomitant]
     Active Substance: ROSUVASTATIN CALCIUM
     Indication: Blood cholesterol increased
  15. CRESTOR [Concomitant]
     Active Substance: ROSUVASTATIN CALCIUM
     Indication: Blood cholesterol increased
     Dates: start: 202204, end: 202305
  16. CRESTOR [Concomitant]
     Active Substance: ROSUVASTATIN CALCIUM
     Indication: Blood cholesterol increased
     Dates: start: 2023
  17. Vitamin D supplements [Concomitant]
     Indication: Product used for unknown indication
  18. Vitamin D supplements [Concomitant]
     Indication: Product used for unknown indication
     Dates: start: 202204, end: 202305
  19. Vitamin D supplements [Concomitant]
     Indication: Product used for unknown indication
     Dosage: 1000-2000 MG
     Dates: start: 2023
  20. ASPIRIN [Concomitant]
     Active Substance: ASPIRIN
     Indication: Aortic arteriosclerosis
  21. ASPIRIN [Concomitant]
     Active Substance: ASPIRIN
     Indication: Aortic arteriosclerosis
     Dates: start: 202204, end: 202305
  22. ASPIRIN [Concomitant]
     Active Substance: ASPIRIN
     Indication: Aortic arteriosclerosis
     Dates: start: 2023
  23. VITAMINS [Concomitant]
     Active Substance: VITAMINS
     Indication: Product used for unknown indication
     Dosage: DAILY
  24. VITAMINS [Concomitant]
     Active Substance: VITAMINS
     Indication: Product used for unknown indication
     Dosage: DAILY
     Dates: start: 202204, end: 202305
  25. VITAMINS [Concomitant]
     Active Substance: VITAMINS
     Indication: Product used for unknown indication
     Dosage: DAILY
     Dates: start: 2023
  26. COQ [Concomitant]
     Indication: Product used for unknown indication
     Dosage: 2-3 TIMES A WEEK.
  27. FISH OIL [Concomitant]
     Active Substance: FISH OIL
     Indication: Product used for unknown indication
     Dosage: OCCASIONALLY
  28. FISH OIL [Concomitant]
     Active Substance: FISH OIL
     Indication: Product used for unknown indication
     Dosage: OCCASIONALLY
     Dates: start: 202204, end: 202305
  29. FISH OIL [Concomitant]
     Active Substance: FISH OIL
     Indication: Product used for unknown indication
     Dosage: OCCASIONALLY
     Dates: start: 2023

REACTIONS (5)
  - Bone density decreased [Unknown]
  - Osteoporosis [Unknown]
  - Condition aggravated [Unknown]
  - Drug ineffective [Unknown]
  - Product dose omission issue [Unknown]
